FAERS Safety Report 10589392 (Version 1)
Quarter: 2014Q4

REPORT INFORMATION
  Report Type: Report from Study
  Country: US (occurrence: US)
  Receive Date: 20141118
  Receipt Date: 20141118
  Transmission Date: 20150529
  Serious: Yes (Other)
  Sender: FDA-Public Use
  Company Number: US-BIOGENIDEC-2014BI118071

PATIENT
  Sex: Female

DRUGS (1)
  1. TECFIDERA [Suspect]
     Active Substance: DIMETHYL FUMARATE
     Indication: MULTIPLE SCLEROSIS

REACTIONS (5)
  - Vomiting [Recovered/Resolved]
  - Gastric ulcer [Recovered/Resolved]
  - Oesophageal rupture [Recovered/Resolved]
  - Nausea [Recovered/Resolved]
  - Oesophageal ulcer [Recovered/Resolved]
